FAERS Safety Report 4491626-8 (Version None)
Quarter: 2004Q3

REPORT INFORMATION
  Report Type: 
  Country: None (occurrence: None)
  Receive Date: 20040921
  Receipt Date: 20040324
  Transmission Date: 20050211
  Serious: Yes (Hospitalization)
  Sender: FDA-Public Use
  Company Number: 163-20785-04030618

PATIENT
  Age: 69 Year
  Sex: Female
  Weight: 56.246 kg

DRUGS (19)
  1. THALOMID [Suspect]
     Indication: NON-SMALL CELL LUNG CANCER
     Dosage: 150 MG, DAILY, ORAL
     Route: 048
     Dates: start: 20040204, end: 20040201
  2. TAXOTERE [Suspect]
     Indication: NON-SMALL CELL LUNG CANCER
     Dosage: 113MG (75MG/M2) EVERY 21 DAYS, INTRAVENOUS
     Route: 042
     Dates: start: 20031218, end: 20040129
  3. COMPAZINE (PROCHLORPERAZINE EDISYLATE0 [Concomitant]
  4. VICODIN [Concomitant]
  5. LIPITOR [Concomitant]
  6. LISINOPRIL [Concomitant]
  7. DECADRON [Concomitant]
  8. REGLAN [Concomitant]
  9. NEUPOGEN [Concomitant]
  10. CIPROFLOXACIN [Concomitant]
  11. ATIVAN [Concomitant]
  12. ZOFRAN [Concomitant]
  13. NYSTATIN [Concomitant]
  14. COUMADIN [Concomitant]
  15. FLUOCINONIDE [Concomitant]
  16. AMOXICILLIN [Concomitant]
  17. FLOXIN (OFLOXACIN) [Concomitant]
  18. VANTIN [Concomitant]
  19. TRIMETHOBENZAMIDE HCL (TRIMETHOBENZAMIDE HCL) [Concomitant]

REACTIONS (10)
  - ASTHENIA [None]
  - BLOOD CALCIUM DECREASED [None]
  - BLOOD POTASSIUM DECREASED [None]
  - CONFUSIONAL STATE [None]
  - DEHYDRATION [None]
  - HAEMATOCRIT DECREASED [None]
  - HAEMOGLOBIN DECREASED [None]
  - LABORATORY TEST ABNORMAL [None]
  - NAUSEA [None]
  - VOMITING [None]
